FAERS Safety Report 6635185-X (Version None)
Quarter: 2010Q1

REPORT INFORMATION
  Report Type: 
  Country: None (occurrence: None)
  Receive Date: 20100315
  Receipt Date: 20100310
  Transmission Date: 20100710
  Serious: No
  Sender: FDA-Public Use
  Company Number: CH-ROCHE-671285

PATIENT
  Sex: Male
  Weight: 3.8 kg

DRUGS (1)
  1. TAMIFLU [Suspect]
     Indication: INFLUENZA
     Route: 064
     Dates: start: 20091118, end: 20091122

REACTIONS (2)
  - NO ADVERSE EVENT [None]
  - NORMAL NEWBORN [None]
